FAERS Safety Report 25276162 (Version 2)
Quarter: 2025Q4

REPORT INFORMATION
  Report Type: Spontaneous
  Country: EU (occurrence: EU)
  Receive Date: 20250507
  Receipt Date: 20251121
  Transmission Date: 20260118
  Serious: Yes (Death)
  Sender: ACCORD
  Company Number: None

PATIENT
  Age: 78 Year
  Sex: Female

DRUGS (6)
  1. CISPLATIN [Suspect]
     Active Substance: CISPLATIN
     Indication: Cholangiocarcinoma
     Dates: end: 20250225
  2. GEMCITABINE [Suspect]
     Active Substance: GEMCITABINE
     Indication: Cholangiocarcinoma
     Dates: end: 20250225
  3. DURVALUMAB [Suspect]
     Active Substance: DURVALUMAB
     Indication: Cholangiocarcinoma
     Dates: end: 20250225
  4. LEVOTHYROXINE SODIUM [Concomitant]
     Active Substance: LEVOTHYROXINE SODIUM
     Dosage: 125 MCG TABLETS
  5. LASIX [Concomitant]
     Active Substance: FUROSEMIDE
     Dosage: 25 MG 1 TABLET X 2/DAY
  6. BISOPROLOL FUMARATE [Concomitant]
     Active Substance: BISOPROLOL FUMARATE
     Dosage: 1.25 MG 1 TABLET/DAY

REACTIONS (1)
  - Thrombotic thrombocytopenic purpura [Fatal]

NARRATIVE: CASE EVENT DATE: 20250301
